FAERS Safety Report 14691943 (Version 8)
Quarter: 2019Q3

REPORT INFORMATION
  Report Type: Report from Study
  Country: None (occurrence: US)
  Receive Date: 20180329
  Receipt Date: 20190717
  Transmission Date: 20191004
  Serious: Yes (Hospitalization)
  Sender: FDA-Public Use
  Company Number: US-ABBVIE-18K-163-2299571-00

PATIENT
  Age: 52 Year
  Sex: Female

DRUGS (2)
  1. HUMIRA [Suspect]
     Active Substance: ADALIMUMAB
     Indication: RHEUMATOID ARTHRITIS
     Route: 058
     Dates: end: 201806
  2. CAFFEINE. [Suspect]
     Active Substance: CAFFEINE
     Indication: PRODUCT USED FOR UNKNOWN INDICATION
     Route: 065

REACTIONS (10)
  - Drug withdrawal syndrome [Unknown]
  - Chills [Unknown]
  - Pain in extremity [Unknown]
  - Nasopharyngitis [Unknown]
  - Asthma [Unknown]
  - Bone deformity [Unknown]
  - Sensitivity to weather change [Unknown]
  - Muscle tightness [Unknown]
  - Rheumatoid arthritis [Unknown]
  - Asthenia [Unknown]

NARRATIVE: CASE EVENT DATE: 201803
